FAERS Safety Report 15347405 (Version 1)
Quarter: 2018Q3

REPORT INFORMATION
  Report Type: Spontaneous
  Country: DK (occurrence: DK)
  Receive Date: 20180904
  Receipt Date: 20180904
  Transmission Date: 20181010
  Serious: Yes (Hospitalization)
  Sender: FDA-Public Use
  Company Number: DK-009507513-1808DNK012156

PATIENT
  Age: 57 Year
  Sex: Male

DRUGS (19)
  1. ENALAPRIL [Concomitant]
     Active Substance: ENALAPRIL
     Indication: HYPERTENSION
     Dosage: 5 MG, QD
     Route: 048
     Dates: start: 20141022
  2. BACTROBAN (MUPIROCIN CALCIUM) [Concomitant]
     Indication: SKIN INFECTION
     Dosage: 2 DF, QD (A THIN LAYER MORNING AND EVENING)
     Route: 003
     Dates: start: 20180725
  3. ETALPHA [Concomitant]
     Active Substance: ALFACALCIDOL
     Indication: CALCIUM METABOLISM DISORDER
     Dosage: 0.75 MICROGRAM, QW
     Route: 048
     Dates: start: 20180315
  4. GABAPENTIN. [Concomitant]
     Active Substance: GABAPENTIN
     Indication: PAIN
     Dosage: 300 MG, QOD
     Route: 048
     Dates: start: 20180515
  5. MAREVAN [Concomitant]
     Active Substance: WARFARIN SODIUM
     Indication: THROMBOSIS PROPHYLAXIS
     Dosage: 5 MG, QD
     Route: 048
     Dates: start: 20150602
  6. CANCIDAS [Suspect]
     Active Substance: CASPOFUNGIN ACETATE
     Indication: PERITONITIS
     Dosage: 50 MG, QD
     Route: 042
     Dates: start: 20180719, end: 20180802
  7. AMLODIPINE [Concomitant]
     Active Substance: AMLODIPINE BESYLATE
     Indication: HYPERTENSION
     Dosage: 5 MG, QD
     Route: 048
     Dates: start: 20150708
  8. BRENTAN (MICONAZOLE NITRATE) [Concomitant]
     Indication: FUNGAL INFECTION
     Dosage: 2 DF, QD
     Route: 003
     Dates: start: 20180731
  9. HJERTEMAGNYL (ASPIRIN) [Concomitant]
     Indication: THROMBOSIS PROPHYLAXIS
     Dosage: 75 MG, QD
     Route: 048
     Dates: start: 20170204
  10. NOVORAPID [Concomitant]
     Active Substance: INSULIN ASPART
     Indication: DIABETES MELLITUS
     Dosage: 4 IU, PRN
     Dates: start: 20170217
  11. PAMOL [Concomitant]
     Active Substance: ACETAMINOPHEN
     Indication: PAIN
     Dosage: 4000 MG, QD
     Route: 048
     Dates: start: 20180507
  12. LIPISTAD [Concomitant]
     Indication: HYPERCHOLESTEROLAEMIA
     Dosage: 80 MG, QD
     Route: 048
     Dates: start: 20150424
  13. METOPROLOL SUCCINATE. [Concomitant]
     Active Substance: METOPROLOL SUCCINATE
     Indication: ARRHYTHMIA
     Dosage: 50 MG, QD
     Route: 048
     Dates: start: 20130914
  14. FURIX [Concomitant]
     Active Substance: FUROSEMIDE
     Indication: DIURETIC THERAPY
     Dosage: 1000 MG, QD
     Route: 048
     Dates: start: 20170221
  15. KETOGAN (DIFENBUTAMINE HYDROCHLORIDE (+) KETOBEMIDONE HYDROCHLORIDE) [Concomitant]
     Indication: PAIN
     Dosage: 1 DF (5+25MG), PRN
     Route: 048
     Dates: start: 20180509
  16. LANSOPRAZOLE. [Concomitant]
     Active Substance: LANSOPRAZOLE
     Indication: PROPHYLAXIS AGAINST GASTROINTESTINAL ULCER
     Dosage: 30 MG, QD
     Route: 048
     Dates: start: 20170328
  17. ARANESP [Concomitant]
     Active Substance: DARBEPOETIN ALFA
     Indication: ANAEMIA
     Dosage: 40 MICROGRAM, QW
     Dates: start: 20171124
  18. INSULATARD (INSULIN HUMAN, ISOPHANE) [Concomitant]
     Active Substance: INSULIN HUMAN
     Indication: DIABETES MELLITUS
     Dosage: 32 IU, QD
     Dates: start: 20140820
  19. POTASSIUM CHLORIDE. [Concomitant]
     Active Substance: POTASSIUM CHLORIDE
     Indication: HYPOKALAEMIA
     Dosage: 750 MG, QD
     Route: 048
     Dates: start: 20180703

REACTIONS (3)
  - Pyrexia [Recovered/Resolved with Sequelae]
  - Rash [Recovering/Resolving]
  - Eosinophilia [Unknown]

NARRATIVE: CASE EVENT DATE: 201807
